FAERS Safety Report 17658149 (Version 3)
Quarter: 2020Q4

REPORT INFORMATION
  Report Type: Spontaneous
  Country: US (occurrence: US)
  Receive Date: 20200411
  Receipt Date: 20201213
  Transmission Date: 20210113
  Serious: Yes (Death, Other)
  Sender: FDA-Public Use
  Company Number: US-TEVA-2020-US-1220928

PATIENT
  Age: 73 Year
  Sex: Male

DRUGS (7)
  1. VALSARTAN. [Suspect]
     Active Substance: VALSARTAN
     Route: 065
  2. EXFORGE HCT [Concomitant]
     Active Substance: AMLODIPINE BESYLATE\HYDROCHLOROTHIAZIDE\VALSARTAN
     Dosage: .5 MILLIGRAM DAILY; DOSAGE: 50MG, 16MG, 12.5MILLIGRAM
     Route: 048
  3. MEPERIDINE [Concomitant]
     Active Substance: MEPERIDINE
     Dosage: Q3H
     Route: 030
  4. ONDANSETRON [Concomitant]
     Active Substance: ONDANSETRON
     Dosage: 4 MILLIGRAM 2ML Q6H
     Route: 042
  5. ATIVAN [Concomitant]
     Active Substance: LORAZEPAM
     Dosage: 3 GRAM DAILY; DOSAGE: 1 TAB; PRN, TID
  6. DEXILANT [Concomitant]
     Active Substance: DEXLANSOPRAZOLE
     Dosage: 60 MILLIGRAM DAILY; 60 MG; DAILY
     Route: 048
  7. FERROUS SULFATE. [Concomitant]
     Active Substance: FERROUS SULFATE
     Dosage: 975 MILLIGRAM DAILY;
     Route: 048

REACTIONS (3)
  - Colorectal cancer [Unknown]
  - Death [Fatal]
  - Hepatic cancer [Unknown]
